FAERS Safety Report 19161253 (Version 4)
Quarter: 2021Q2

REPORT INFORMATION
  Report Type: Report from Study
  Country: CA (occurrence: CA)
  Receive Date: 20210421
  Receipt Date: 20210628
  Transmission Date: 20210717
  Serious: Yes (Hospitalization)
  Sender: FDA-Public Use
  Company Number: CA-JNJFOC-20210432920

PATIENT
  Age: 31 Year
  Sex: Male

DRUGS (10)
  1. PARACETAMOL [Concomitant]
     Active Substance: ACETAMINOPHEN
  2. ACETYLSALICYLIC ACID (CARDIO) [Suspect]
     Active Substance: ASPIRIN
     Indication: COVID-19
     Dosage: UNK
     Dates: start: 20210316, end: 20210413
  3. TOCILIZUMAB. [Concomitant]
     Active Substance: TOCILIZUMAB
  4. FAVIPIRAVIR [Concomitant]
     Active Substance: FAVIPIRAVIR
  5. RIVAROXABAN [Suspect]
     Active Substance: RIVAROXABAN
     Indication: COVID-19
     Dosage: 2.5 MG, BID
     Route: 048
     Dates: start: 20210330, end: 20210413
  6. ENOXAPARIN [Concomitant]
     Active Substance: ENOXAPARIN
  7. RIVAROXABAN [Suspect]
     Active Substance: RIVAROXABAN
     Indication: COVID-19
     Dosage: 2.5 MG, BID
     Route: 048
     Dates: start: 20210316, end: 20210324
  8. COLCHICINE. [Suspect]
     Active Substance: COLCHICINE
     Indication: COVID-19
     Dosage: UNK
     Dates: start: 20210316, end: 20210322
  9. DEXAMETHASONE. [Concomitant]
     Active Substance: DEXAMETHASONE
  10. CONVALESCENT PLASMA COVID?19 [Concomitant]
     Active Substance: COVID-19 CONVALESCENT PLASMA

REACTIONS (1)
  - Drug-induced liver injury [Recovered/Resolved]

NARRATIVE: CASE EVENT DATE: 20210322
